FAERS Safety Report 6580223-6 (Version None)
Quarter: 2010Q1

REPORT INFORMATION
  Report Type: 
  Country: None (occurrence: None)
  Receive Date: 20100203
  Receipt Date: 20100119
  Transmission Date: 20100710
  Serious: Yes (Life-Threatening)
  Sender: FDA-Public Use
  Company Number: 100126-0000099

PATIENT
  Age: 15 Month
  Sex: Male

DRUGS (3)
  1. COSMEGEN [Suspect]
     Indication: SARCOMA
  2. VINCRISTINE [Suspect]
     Indication: SARCOMA
  3. IFOSFAMIDE [Suspect]
     Indication: SARCOMA

REACTIONS (7)
  - ABDOMINAL WALL HAEMORRHAGE [None]
  - ACUTE PULMONARY OEDEMA [None]
  - INTRA-ABDOMINAL HAEMORRHAGE [None]
  - MULTI-ORGAN FAILURE [None]
  - PULMONARY HAEMORRHAGE [None]
  - RESPIRATORY FAILURE [None]
  - SHOCK HAEMORRHAGIC [None]
